FAERS Safety Report 9265960 (Version 1)
Quarter: 2013Q2

REPORT INFORMATION
  Report Type: Other
  Country: GB (occurrence: GB)
  Receive Date: 20130501
  Receipt Date: 20130501
  Transmission Date: 20140414
  Serious: Yes (Hospitalization)
  Sender: FDA-Public Use
  Company Number: GB-WATSON-2013-05554

PATIENT
  Age: 61 Year
  Sex: Female

DRUGS (2)
  1. LANSOPRAZOLE (UNKNOWN) [Suspect]
     Indication: DYSPEPSIA
     Dosage: 30 MG
     Route: 065
     Dates: start: 20130213, end: 20130306
  2. OMEPRAZOLE (UNKNOWN) [Suspect]
     Indication: PRODUCT USED FOR UNKNOWN INDICATION
     Dosage: 80 MG, DAILY
     Route: 065

REACTIONS (4)
  - Melaena [Recovered/Resolved]
  - Fatigue [Unknown]
  - Rash [Unknown]
  - Abdominal pain lower [Unknown]
